FAERS Safety Report 8138473 (Version 8)
Quarter: 2013Q4

REPORT INFORMATION
  Report Type: Spontaneous
  Country: PR (occurrence: PR)
  Receive Date: 20110915
  Receipt Date: 20131115
  Transmission Date: 20140711
  Serious: Yes (Death, Hospitalization, Other)
  Sender: FDA-Public Use
  Company Number: PR-AMGEN-PRISP2011045905

PATIENT
  Age: 78 Year
  Sex: Male
  Weight: 90.7 kg

DRUGS (10)
  1. PROCRIT [Suspect]
     Indication: ANAEMIA
     Dosage: 40000 UNIT/ML 4 PACK RAR
     Route: 065
     Dates: start: 20100825, end: 20100901
  2. PROCRIT [Suspect]
     Dosage: UNK
     Route: 065
  3. PROCRIT [Suspect]
     Dosage: 1000 IU, UNK
     Route: 065
     Dates: start: 20100908
  4. LEVOX [Concomitant]
     Indication: HYPOTHYROIDISM
     Dosage: 50 UNK, UNK
  5. LASIX                              /00032601/ [Concomitant]
     Indication: HYPERTENSION
     Dosage: 20 UNK, UNK
  6. LASIX                              /00032601/ [Concomitant]
     Dosage: 400 MG, Q12H
     Dates: start: 20100908, end: 20100909
  7. DENAPOL [Concomitant]
     Dosage: 100 UNK, UNK
  8. DANAZOL [Concomitant]
     Dosage: 500 MG, UNK
  9. MICARDIS [Concomitant]
     Indication: HYPERTENSION
     Dosage: UNK UNK, QD
     Route: 048
  10. SYNTHROID [Concomitant]
     Dosage: UNK

REACTIONS (17)
  - Pulmonary embolism [Fatal]
  - Abdominal discomfort [Unknown]
  - Tachycardia [Unknown]
  - Testicular oedema [Unknown]
  - Fall [Unknown]
  - Joint dislocation [Unknown]
  - Pain [Unknown]
  - Oedema peripheral [Unknown]
  - Emotional distress [Unknown]
  - Urine output decreased [Unknown]
  - Body temperature decreased [Unknown]
  - Feeling of despair [Unknown]
  - Anaemia [Unknown]
  - Anxiety [Unknown]
  - Nausea [Unknown]
  - Dizziness [Unknown]
  - Weight decreased [Unknown]
